FAERS Safety Report 9561079 (Version 1)
Quarter: 2013Q3

REPORT INFORMATION
  Report Type: Spontaneous
  Country: US (occurrence: None)
  Receive Date: 20130821
  Receipt Date: 20130821
  Transmission Date: 20140515
  Serious: No
  Sender: FDA-Public Use
  Company Number: 1000045138

PATIENT
  Age: 73 Year
  Sex: Female

DRUGS (7)
  1. TUDORZA PRESSAIR (ACLIDINIUM BROMIDE) (400 MICROGRAM, POWDER) [Suspect]
     Indication: COUGH
     Dosage: 800 MCG (400 MCG, 2 IN 1 D), ORAL
     Route: 048
     Dates: start: 20130507, end: 20130507
  2. HYZAAR (HYDROCHLOROTHIAZIDE, LOSARTAN) [Concomitant]
  3. PLENDIL (FELODIPINE) [Concomitant]
  4. ZOCOR (SIMVASTATIN) [Concomitant]
  5. TOPROL (METOPROLOL SUCCINATE) [Concomitant]
  6. LIBRAX (CHLORDTAZEPOXIDE, CLIDINIUM) [Concomitant]
  7. BENADRYL (DIPHENHYDRAMINE) [Concomitant]

REACTIONS (3)
  - Productive cough [None]
  - Product taste abnormal [None]
  - Off label use [None]
